FAERS Safety Report 9110435 (Version 1)
Quarter: 2013Q1

REPORT INFORMATION
  Report Type: Spontaneous
  Country: US (occurrence: US)
  Receive Date: 20130219
  Receipt Date: 20130219
  Transmission Date: 20140127
  Serious: Yes (Life-Threatening, Hospitalization)
  Sender: FDA-Public Use
  Company Number: US-BRACCO-007340

PATIENT
  Age: 33 Year
  Sex: Female
  Weight: 73 kg

DRUGS (7)
  1. DILAUDID [Concomitant]
  2. TYLENOL [Concomitant]
  3. ISOVUE 300 [Suspect]
     Indication: ABDOMINAL PAIN UPPER
     Route: 042
     Dates: start: 20111229, end: 20111229
  4. ISOVUE 300 [Suspect]
     Indication: COMPUTERISED TOMOGRAM
     Route: 042
     Dates: start: 20111229, end: 20111229
  5. ISOVUE 300 [Suspect]
     Indication: LIPASE INCREASED
     Route: 042
     Dates: start: 20111229, end: 20111229
  6. MOBIC [Concomitant]
  7. CYCLOBENZAPRINE [Concomitant]

REACTIONS (1)
  - Anaphylactic reaction [Recovered/Resolved]
